FAERS Safety Report 10357904 (Version 1)
Quarter: 2014Q3

REPORT INFORMATION
  Report Type: Spontaneous
  Country: US (occurrence: None)
  Receive Date: 20140730
  Receipt Date: 20140730
  Transmission Date: 20150326
  Serious: Yes (Hospitalization)
  Sender: FDA-Public Use
  Company Number: 2014SMT00025

PATIENT
  Age: 75 Year
  Sex: Male

DRUGS (1)
  1. REGRANEX [Suspect]
     Active Substance: BECAPLERMIN

REACTIONS (1)
  - Wound necrosis [None]
